FAERS Safety Report 20595493 (Version 1)
Quarter: 2022Q1

REPORT INFORMATION
  Report Type: Spontaneous
  Country: CA (occurrence: CA)
  Receive Date: 20220315
  Receipt Date: 20220315
  Transmission Date: 20220424
  Serious: Yes (Life-Threatening, Other)
  Sender: FDA-Public Use
  Company Number: None

PATIENT
  Age: 9 Month
  Sex: Male

DRUGS (13)
  1. CARBOPLATIN [Suspect]
     Active Substance: CARBOPLATIN
     Indication: Transplant
     Dosage: 1 EVERY 4 HOURS
     Route: 042
  2. THIOTEPA [Suspect]
     Active Substance: THIOTEPA
     Indication: Transplant
     Dosage: 1 EVERY 2 HOURS
     Route: 042
  3. ACYCLOVIR [Concomitant]
     Active Substance: ACYCLOVIR
  4. CEFTAZIDIME [Concomitant]
     Active Substance: CEFTAZIDIME
  5. CHOLECALCIFEROL [Concomitant]
     Active Substance: CHOLECALCIFEROL
  6. FAMOTIDINE [Concomitant]
     Active Substance: FAMOTIDINE
  7. FLUCONAZOLE [Concomitant]
     Active Substance: FLUCONAZOLE
  8. GRANULOCYTE COLONY STIMULATING FACT [Concomitant]
  9. HYDROCORTISONE [Concomitant]
     Active Substance: HYDROCORTISONE
  10. ONDANSETRON [Concomitant]
     Active Substance: ONDANSETRON
  11. PENTAMIDINE ISETHIONATE [Concomitant]
     Active Substance: PENTAMIDINE ISETHIONATE
     Dosage: INJ 300MG/VIAL BP
  12. URSODIOL [Concomitant]
     Active Substance: URSODIOL
  13. VANCOMYCIN [Concomitant]
     Active Substance: VANCOMYCIN

REACTIONS (7)
  - Aplastic anaemia [Recovered/Resolved]
  - Diarrhoea [Recovered/Resolved]
  - Haemoglobin decreased [Recovered/Resolved]
  - Mucosal inflammation [Recovered/Resolved]
  - Neutrophil count decreased [Recovered/Resolved]
  - Platelet count decreased [Recovered/Resolved]
  - White blood cell count decreased [Recovered/Resolved]
